FAERS Safety Report 5066189-9 (Version None)
Quarter: 2006Q3

REPORT INFORMATION
  Report Type: 
  Country: None (occurrence: None)
  Receive Date: 20060703
  Receipt Date: 20051019
  Transmission Date: 20061208
  Serious: Yes (Other)
  Sender: FDA-Public Use
  Company Number: WAES 0510USA07886

PATIENT
  Age: 56 Year
  Sex: Male
  Weight: 77.1115 kg

DRUGS (6)
  1. HYZAAR [Suspect]
     Indication: HYPERTENSION
     Dosage: 100-25 MG/DAILY/PO
     Route: 048
     Dates: start: 20020101, end: 20051007
  2. CIALIS [Concomitant]
  3. COREG [Concomitant]
  4. DIABINESE [Concomitant]
  5. GLUCOPHAGE [Concomitant]
  6. LOTREL [Concomitant]

REACTIONS (1)
  - HYPONATRAEMIA [None]
